FAERS Safety Report 5012075-X (Version None)
Quarter: 2006Q2

REPORT INFORMATION
  Report Type: 
  Country: None (occurrence: None)
  Receive Date: 20060526
  Receipt Date: 20060517
  Transmission Date: 20061013
  Serious: Yes (Hospitalization)
  Sender: FDA-Public Use
  Company Number: JP-GLAXOSMITHKLINE-B0425185A

PATIENT
  Age: 48 Year
  Sex: Female

DRUGS (10)
  1. CARVEDILOL [Suspect]
     Indication: CARDIAC FAILURE CHRONIC
     Dosage: 2.5MG TWICE PER DAY
     Dates: start: 20041028, end: 20050222
  2. WARFARIN SODIUM [Suspect]
     Dosage: 1.25MG PER DAY
     Dates: start: 20050111
  3. ASPIRIN [Concomitant]
     Dates: start: 20041022, end: 20050222
  4. DILTIAZEM [Concomitant]
  5. BUCOLOME [Concomitant]
  6. ALDACTONE [Concomitant]
  7. DIART [Concomitant]
  8. ALLOPURINOL [Concomitant]
  9. LIPITOR [Concomitant]
  10. MEXITIL [Concomitant]

REACTIONS (1)
  - CEREBRAL HAEMORRHAGE [None]
